FAERS Safety Report 17163692 (Version 2)
Quarter: 2020Q1

REPORT INFORMATION
  Report Type: Spontaneous
  Country: AU (occurrence: AU)
  Receive Date: 20191217
  Receipt Date: 20200207
  Transmission Date: 20200409
  Serious: Yes (Death)
  Sender: FDA-Public Use
  Company Number: NVSC2019AU070677

PATIENT
  Age: 70 Year
  Sex: Female
  Weight: 55 kg

DRUGS (1)
  1. KISQALI [Suspect]
     Active Substance: RIBOCICLIB
     Indication: BREAST CANCER METASTATIC
     Dosage: 200 MG, TID
     Route: 048
     Dates: start: 20190919

REACTIONS (5)
  - Breast cancer metastatic [Fatal]
  - Endocarditis [Fatal]
  - Acute respiratory distress syndrome [Fatal]
  - Aortic valve incompetence [Fatal]
  - Pneumonitis [Fatal]

NARRATIVE: CASE EVENT DATE: 20191022
